FAERS Safety Report 23198915 (Version 1)
Quarter: 2023Q4

REPORT INFORMATION
  Report Type: Spontaneous
  Country: US (occurrence: US)
  Receive Date: 20231117
  Receipt Date: 20231117
  Transmission Date: 20240109
  Serious: No
  Sender: FDA-Public Use
  Company Number: US-Stemline Therapeutics, Inc.-2023ST003183

PATIENT
  Age: 81 Year
  Sex: Female

DRUGS (3)
  1. ORSERDU [Suspect]
     Active Substance: ELACESTRANT
     Indication: Product used for unknown indication
     Dosage: 86 MG 4 TABS DAILY
     Route: 048
     Dates: start: 20230815, end: 20231023
  2. ORSERDU [Suspect]
     Active Substance: ELACESTRANT
     Dosage: 86 MG 4 TABS DAILY
     Route: 048
     Dates: start: 20230815
  3. GABAPENTIN [Concomitant]
     Active Substance: GABAPENTIN
     Indication: Product used for unknown indication

REACTIONS (5)
  - Infection [Unknown]
  - Illness [Unknown]
  - Product use complaint [Unknown]
  - Urinary tract infection [Unknown]
  - Diarrhoea [Unknown]
